FAERS Safety Report 6182825-8 (Version None)
Quarter: 2009Q2

REPORT INFORMATION
  Report Type: 
  Country: None (occurrence: None)
  Receive Date: 20090505
  Receipt Date: 20090421
  Transmission Date: 20091009
  Serious: Yes (Death)
  Sender: FDA-Public Use
  Company Number: CERZ-1000617

PATIENT

DRUGS (3)
  1. CEREZYME [Suspect]
     Indication: GAUCHER'S DISEASE
     Dosage: 40 U, MONTH
     Dates: start: 19970825, end: 20080508
  2. LENALIDOMIDE (LENALIDOMIDE) [Concomitant]
  3. THALIDOMINE (THALIDOMINE) [Concomitant]

REACTIONS (4)
  - ARRHYTHMIA [None]
  - HAEMORRHAGE [None]
  - PULMONARY EMBOLISM [None]
  - SUDDEN DEATH [None]
